FAERS Safety Report 5841256-8 (Version None)
Quarter: 2008Q3

REPORT INFORMATION
  Report Type: 
  Country: None (occurrence: None)
  Receive Date: 20080812
  Receipt Date: 20080807
  Transmission Date: 20090109
  Serious: Yes (Life-Threatening, Hospitalization)
  Sender: FDA-Public Use
  Company Number: FR-BRISTOL-MYERS SQUIBB COMPANY-14296487

PATIENT
  Age: 71 Year
  Sex: Male

DRUGS (11)
  1. GLUCOVANCE [Suspect]
     Indication: DIABETES MELLITUS
     Dosage: 2 DOSAGE FORM = 2 500MG/5 MG COATED TABLET
     Route: 048
     Dates: start: 20050501, end: 20080620
  2. AVANDAMET [Suspect]
     Indication: DIABETES MELLITUS
     Dosage: 1 DOSAGE FORM = 1 COATED TABLETS
     Route: 048
     Dates: start: 20080401, end: 20080620
  3. CRESTOR [Concomitant]
     Dosage: CRESTOR COATED TAB
  4. PLAVIX [Concomitant]
     Dosage: PLAVIX COATED TABLET
  5. VERAPAMIL [Concomitant]
  6. ALLOPURINOL [Concomitant]
  7. ALDALIX [Concomitant]
  8. BROMAZEPAM [Concomitant]
  9. OXEOL [Concomitant]
  10. SERETIDE [Concomitant]
  11. VENTOLIN [Concomitant]

REACTIONS (4)
  - HEPATOCELLULAR INJURY [None]
  - HYPERKALAEMIA [None]
  - LACTIC ACIDOSIS [None]
  - RENAL FAILURE [None]
